FAERS Safety Report 11798306 (Version 1)
Quarter: 2015Q4

REPORT INFORMATION
  Report Type: Spontaneous
  Country: US (occurrence: US)
  Receive Date: 20151203
  Receipt Date: 20151203
  Transmission Date: 20160305
  Serious: No
  Sender: FDA-Public Use
  Company Number: US-REGENERON PHARMACEUTICALS, INC.-2015-11268

PATIENT

DRUGS (8)
  1. PRAVASTATIN [Concomitant]
     Active Substance: PRAVASTATIN\PRAVASTATIN SODIUM
     Dosage: 20 MG MILLIGRAM(S), QD
  2. CLONIDINE. [Concomitant]
     Active Substance: CLONIDINE
     Dosage: 0.3 MG MILLIGRAM(S), TID
  3. K-LOR [Concomitant]
     Dosage: UNK
  4. LYRICA [Concomitant]
     Active Substance: PREGABALIN
     Dosage: 50 MG MILLIGRAM(S), QD
  5. WARFARIN [Concomitant]
     Active Substance: WARFARIN
     Dosage: 2 MG MILLIGRAM(S), QD
  6. LOSARTAN. [Concomitant]
     Active Substance: LOSARTAN
     Dosage: 25 MG MILLIGRAM(S), QD
  7. EYLEA [Suspect]
     Active Substance: AFLIBERCEPT
     Indication: NEOVASCULAR AGE-RELATED MACULAR DEGENERATION
     Dosage: UNK
     Route: 031
     Dates: start: 20150507
  8. CELEBREX [Concomitant]
     Active Substance: CELECOXIB
     Dosage: 200 MG MILLIGRAM(S), QD

REACTIONS (3)
  - Vomiting [Recovered/Resolved]
  - Retching [Unknown]
  - Diarrhoea [Recovered/Resolved]

NARRATIVE: CASE EVENT DATE: 20150508
